FAERS Safety Report 20377886 (Version 3)
Quarter: 2022Q1

REPORT INFORMATION
  Report Type: Spontaneous
  Country: JP (occurrence: JP)
  Receive Date: 20220126
  Receipt Date: 20220321
  Transmission Date: 20220423
  Serious: Yes (Hospitalization)
  Sender: FDA-Public Use
  Company Number: JP-ABBVIE-22K-087-4248259-00

PATIENT
  Age: 38 Year
  Sex: Male
  Weight: 65 kg

DRUGS (3)
  1. RINVOQ [Suspect]
     Active Substance: UPADACITINIB
     Indication: Dermatitis atopic
     Route: 048
     Dates: start: 20211104, end: 20220122
  2. RINVOQ [Suspect]
     Active Substance: UPADACITINIB
     Route: 048
     Dates: start: 20220211
  3. HEPARINOID [Concomitant]
     Indication: Dermatitis atopic
     Dosage: Q.S.
     Route: 061

REACTIONS (2)
  - Eczema herpeticum [Recovered/Resolved]
  - Varicella [Unknown]

NARRATIVE: CASE EVENT DATE: 20220118
